FAERS Safety Report 22384062 (Version 1)
Quarter: 2023Q2

REPORT INFORMATION
  Report Type: Spontaneous
  Country: US (occurrence: None)
  Receive Date: 20230527
  Receipt Date: 20230527
  Transmission Date: 20230722
  Serious: Yes (Hospitalization, Other)
  Sender: FDA-Public Use
  Company Number: None

PATIENT
  Age: 40 Year
  Sex: Female
  Weight: 57.15 kg

DRUGS (6)
  1. CEFAZOLIN [Suspect]
     Active Substance: CEFAZOLIN
     Indication: Mastitis
     Dates: start: 20230525, end: 20230526
  2. VITAMINS [Concomitant]
     Active Substance: VITAMINS
  3. MAGNESIUM [Concomitant]
     Active Substance: MAGNESIUM
  4. CLARITIN [Concomitant]
     Active Substance: LORATADINE
  5. OMEGA-3 ACIDS [Concomitant]
     Active Substance: OMEGA-3 FATTY ACIDS
  6. sunflower lecithin [Concomitant]

REACTIONS (4)
  - Malaise [None]
  - Asthenia [None]
  - Mobility decreased [None]
  - Paraesthesia [None]

NARRATIVE: CASE EVENT DATE: 20230526
